FAERS Safety Report 22038459 (Version 5)
Quarter: 2023Q2

REPORT INFORMATION
  Report Type: Spontaneous
  Country: US (occurrence: US)
  Receive Date: 20230227
  Receipt Date: 20230621
  Transmission Date: 20230721
  Serious: Yes (Hospitalization, Other)
  Sender: FDA-Public Use
  Company Number: US-BRISTOL-MYERS SQUIBB COMPANY-2023-027835

PATIENT
  Age: 77 Year
  Sex: Male

DRUGS (3)
  1. LENALIDOMIDE [Suspect]
     Active Substance: LENALIDOMIDE
     Indication: Plasma cell myeloma
     Dosage: FREQUENCY: TAKE 1 CAPSULE BY ?MOUTH DAILY FOR 14
     Route: 048
     Dates: start: 20230201
  2. LENALIDOMIDE [Suspect]
     Active Substance: LENALIDOMIDE
     Dosage: TAKE 1 WHOLE CAPSULE (5 MG TOTAL) BY MOUTH DAILY, DO NOT BREAK, OPEN, OR CHEW.
     Route: 048
  3. LENALIDOMIDE [Suspect]
     Active Substance: LENALIDOMIDE
     Route: 048

REACTIONS (6)
  - Hypotension [Unknown]
  - Off label use [Unknown]
  - Dehydration [Unknown]
  - Full blood count decreased [Not Recovered/Not Resolved]
  - Blood creatinine abnormal [Not Recovered/Not Resolved]
  - Urinary tract infection [Recovering/Resolving]

NARRATIVE: CASE EVENT DATE: 20230615
